FAERS Safety Report 7623796-4 (Version None)
Quarter: 2011Q3

REPORT INFORMATION
  Report Type: 
  Country: None (occurrence: None)
  Receive Date: 20110720
  Receipt Date: 20110707
  Transmission Date: 20111222
  Serious: Yes (Death)
  Sender: FDA-Public Use
  Company Number: US-AMGEN-USASP2011034486

PATIENT
  Age: 61 Year
  Sex: Female

DRUGS (5)
  1. ARAVA [Concomitant]
     Dosage: 10 MG, UNK
  2. SPIRIVA [Concomitant]
  3. SYMBICORT [Concomitant]
  4. LIPITOR [Concomitant]
     Dosage: 10 MG, UNK
  5. ENBREL [Suspect]
     Indication: PRODUCT USED FOR UNKNOWN INDICATION
     Dosage: 50 MG, QWK
     Route: 058

REACTIONS (1)
  - DEATH [None]
